FAERS Safety Report 11359178 (Version 2)
Quarter: 2015Q3

REPORT INFORMATION
  Report Type: Spontaneous
  Country: TR (occurrence: TR)
  Receive Date: 20150807
  Receipt Date: 20150810
  Transmission Date: 20151125
  Serious: Yes (Death, Life-Threatening, Other)
  Sender: FDA-Public Use
  Company Number: TR-CELGENE-TUR-2015012901

PATIENT
  Age: 64 Year
  Sex: Male
  Weight: 72 kg

DRUGS (5)
  1. POLYMYXIN [Concomitant]
     Active Substance: POLYMYXIN
     Indication: ADVERSE EVENT
     Route: 065
  2. DIOSMINA HESPERIDINA [Concomitant]
     Indication: ADVERSE EVENT
     Route: 065
     Dates: start: 20141229, end: 20150110
  3. AZACITIDINE INJECTABLE [Suspect]
     Active Substance: AZACITIDINE
     Indication: MYELODYSPLASTIC SYNDROME
     Route: 058
     Dates: start: 20140916, end: 20150110
  4. MEROPENEM. [Concomitant]
     Active Substance: MEROPENEM
     Indication: ADVERSE EVENT
     Route: 065
     Dates: start: 20141219, end: 20150110
  5. COLISTIN [Concomitant]
     Active Substance: COLISTIN
     Indication: ADVERSE EVENT
     Route: 065
     Dates: start: 20150105, end: 20150110

REACTIONS (2)
  - Septic shock [Fatal]
  - Hypotension [Fatal]

NARRATIVE: CASE EVENT DATE: 20150110
